FAERS Safety Report 14359104 (Version 2)
Quarter: 2018Q1

REPORT INFORMATION
  Report Type: Report from Study
  Country: US (occurrence: US)
  Receive Date: 20180105
  Receipt Date: 20180105
  Transmission Date: 20180509
  Serious: No
  Sender: FDA-Public Use
  Company Number: US-AMGEN-USASL2016091907

PATIENT
  Age: 61 Year
  Sex: Female

DRUGS (3)
  1. COUMADIN [Concomitant]
     Active Substance: WARFARIN SODIUM
  2. REPATHA [Suspect]
     Active Substance: EVOLOCUMAB
     Indication: BLOOD CHOLESTEROL INCREASED
     Dosage: Q2WK
     Route: 065
     Dates: start: 201510
  3. PROTEIN [Concomitant]
     Active Substance: PROTEIN
     Dosage: QWK

REACTIONS (5)
  - Swollen tongue [Recovered/Resolved]
  - Pharyngeal oedema [Unknown]
  - International normalised ratio abnormal [Unknown]
  - Therapeutic response delayed [Unknown]
  - Drug effect incomplete [Unknown]
